FAERS Safety Report 13525793 (Version 1)
Quarter: 2017Q2

REPORT INFORMATION
  Report Type: Spontaneous
  Country: US (occurrence: US)
  Receive Date: 20170509
  Receipt Date: 20170509
  Transmission Date: 20170830
  Serious: Yes (Other)
  Sender: FDA-Public Use
  Company Number: US-ROCHE-1932439

PATIENT
  Age: 65 Year
  Sex: Male

DRUGS (1)
  1. XOLAIR [Suspect]
     Active Substance: OMALIZUMAB
     Indication: BRONCHOPULMONARY ASPERGILLOSIS ALLERGIC
     Route: 058

REACTIONS (1)
  - Thrombosis [Recovering/Resolving]
